FAERS Safety Report 10133673 (Version 1)
Quarter: 2014Q2

REPORT INFORMATION
  Report Type: Spontaneous
  Country: US (occurrence: US)
  Receive Date: 20140428
  Receipt Date: 20140428
  Transmission Date: 20141212
  Serious: Yes (Hospitalization, Other)
  Sender: FDA-Public Use
  Company Number: US-BRISTOL-MYERS SQUIBB COMPANY-20656070

PATIENT
  Age: 63 Year
  Sex: Male
  Weight: 61.22 kg

DRUGS (1)
  1. YERVOY [Suspect]
     Indication: MALIGNANT MELANOMA
     Dates: start: 201402

REACTIONS (8)
  - Diarrhoea [Unknown]
  - Nausea [Unknown]
  - Fall [Unknown]
  - Femur fracture [Unknown]
  - Fatigue [Unknown]
  - Dehydration [Unknown]
  - Dyspnoea [Unknown]
  - Proctalgia [Unknown]
